FAERS Safety Report 10206558 (Version 1)
Quarter: 2014Q2

REPORT INFORMATION
  Report Type: Spontaneous
  Country: US (occurrence: US)
  Receive Date: 20140530
  Receipt Date: 20140530
  Transmission Date: 20141212
  Serious: No
  Sender: FDA-Public Use
  Company Number: US-GLAXOSMITHKLINE-A1034947A

PATIENT
  Sex: Female

DRUGS (2)
  1. FLOLAN [Suspect]
     Indication: COR PULMONALE CHRONIC
     Dosage: 10NGKM CONTINUOUS
     Route: 042
     Dates: start: 20121110
  2. VELETRI [Suspect]
     Indication: PRODUCT USED FOR UNKNOWN INDICATION
     Route: 065

REACTIONS (3)
  - Rash macular [Unknown]
  - Pain in jaw [Unknown]
  - Headache [Unknown]
